FAERS Safety Report 8968330 (Version 1)
Quarter: 2012Q4

REPORT INFORMATION
  Report Type: Spontaneous
  Country: US (occurrence: None)
  Receive Date: 20121214
  Receipt Date: 20121214
  Transmission Date: 20130627
  Serious: No
  Sender: FDA-Public Use
  Company Number: None

PATIENT
  Age: 54 Year
  Sex: Male
  Weight: 117.94 kg

DRUGS (2)
  1. LANTUS [Suspect]
     Indication: TYPE 2 DIABETES MELLITUS
     Route: 030
     Dates: start: 20110101, end: 20121206
  2. LANTUS [Suspect]
     Indication: BLOOD SUGAR INCREASED
     Route: 030
     Dates: start: 20110101, end: 20121206

REACTIONS (2)
  - Chromaturia [None]
  - Cardiac disorder [None]
